FAERS Safety Report 9720574 (Version 2)
Quarter: 2013Q4

REPORT INFORMATION
  Report Type: Report from Study
  Country: CA (occurrence: CA)
  Receive Date: 20131129
  Receipt Date: 20131203
  Transmission Date: 20140711
  Serious: No
  Sender: FDA-Public Use
  Company Number: CA-SA-2013SA120659

PATIENT
  Age: 65 Year
  Sex: Female
  Weight: 68 kg

DRUGS (2)
  1. MOZOBIL [Suspect]
     Indication: PLASMA CELL MYELOMA
     Route: 058
     Dates: start: 20131119, end: 20131119
  2. VANCOMYCIN [Concomitant]
     Route: 042
     Dates: start: 20131119

REACTIONS (8)
  - Rhinorrhoea [Recovered/Resolved]
  - Sensory disturbance [Unknown]
  - Cough [Unknown]
  - Tongue disorder [Unknown]
  - Paraesthesia oral [Unknown]
  - Fatigue [Unknown]
  - Burning sensation [Unknown]
  - Injection site pain [Unknown]
